FAERS Safety Report 24533047 (Version 1)
Quarter: 2024Q4

REPORT INFORMATION
  Report Type: Spontaneous
  Country: CN (occurrence: CN)
  Receive Date: 20241022
  Receipt Date: 20241022
  Transmission Date: 20250115
  Serious: Yes (Hospitalization)
  Sender: AMGEN
  Company Number: CN-AMGEN-CHNSP2024208364

PATIENT
  Age: 61 Year
  Sex: Male

DRUGS (10)
  1. EVOLOCUMAB [Suspect]
     Active Substance: EVOLOCUMAB
     Indication: Low density lipoprotein increased
     Dosage: 140 MILLIGRAM, Q2WK
     Route: 058
  2. ASPIRIN [Suspect]
     Active Substance: ASPIRIN
     Indication: Coronary artery disease
     Route: 065
  3. CLOPIDOGREL [Suspect]
     Active Substance: CLOPIDOGREL BISULFATE
     Indication: Coronary artery disease
     Route: 065
  4. ATORVASTATIN [Concomitant]
     Active Substance: ATORVASTATIN
     Indication: Coronary artery disease
     Route: 048
  5. METOPROLOL [Concomitant]
     Active Substance: METOPROLOL
     Indication: Coronary artery disease
  6. FOSINOPRIL [Concomitant]
     Active Substance: FOSINOPRIL
     Indication: Coronary artery disease
  7. TRIMETAZIDINE [Concomitant]
     Active Substance: TRIMETAZIDINE
     Indication: Coronary artery disease
  8. RABEPRAZOLE [Concomitant]
     Active Substance: RABEPRAZOLE
     Indication: Coronary artery disease
  9. TEPRENONE [Concomitant]
     Active Substance: TEPRENONE
     Indication: Coronary artery disease
  10. TICAGRELOR [Concomitant]
     Active Substance: TICAGRELOR
     Indication: Coronary artery disease

REACTIONS (1)
  - Immune thrombocytopenia [Unknown]
